FAERS Safety Report 24761940 (Version 1)
Quarter: 2024Q4

REPORT INFORMATION
  Report Type: Spontaneous
  Country: DE (occurrence: DE)
  Receive Date: 20241221
  Receipt Date: 20241221
  Transmission Date: 20250115
  Serious: Yes (Hospitalization, Disabling, Other)
  Sender: AUROBINDO
  Company Number: DE-PFIZER INC-PV202200052673

PATIENT
  Age: 34 Year
  Sex: Male
  Weight: 125 kg

DRUGS (4)
  1. RAMIPRIL [Suspect]
     Active Substance: RAMIPRIL
     Indication: Product used for unknown indication
     Dosage: 10 MILLIGRAM, ONCE A DAY (5 MG, 2X/DAY)
     Route: 065
  2. COMIRNATY (TOZINAMERAN) [Suspect]
     Active Substance: TOZINAMERAN
     Indication: COVID-19 immunisation
     Dosage: DOSE 3 (BOOSTER), SINGLE
     Route: 065
     Dates: start: 20211120, end: 20211120
  3. LERCANIDIPINE [Concomitant]
     Active Substance: LERCANIDIPINE
     Indication: Product used for unknown indication
     Dosage: 20 MILLIGRAM, ONCE A DAY (10 MG, 2X/DAY)
     Route: 065
  4. PANTOPRAZOLE [Concomitant]
     Active Substance: PANTOPRAZOLE
     Indication: Product used for unknown indication
     Dosage: 40 MILLIGRAM, ONCE A DAY
     Route: 065

REACTIONS (39)
  - CSF test abnormal [Not Recovered/Not Resolved]
  - Encephalomyelitis [Not Recovered/Not Resolved]
  - Erectile dysfunction [Unknown]
  - Multiple sclerosis [Not Recovered/Not Resolved]
  - Myelitis [Not Recovered/Not Resolved]
  - Neuromyelitis optica spectrum disorder [Not Recovered/Not Resolved]
  - Optic neuritis [Unknown]
  - Intervertebral disc protrusion [Recovering/Resolving]
  - Vision blurred [Unknown]
  - Visual acuity reduced [Unknown]
  - Myelopathy [Unknown]
  - Polyneuropathy [Unknown]
  - Eye pain [Not Recovered/Not Resolved]
  - Alanine aminotransferase increased [Unknown]
  - Neuralgia [Not Recovered/Not Resolved]
  - Bladder disorder [Recovering/Resolving]
  - Micturition urgency [Not Recovered/Not Resolved]
  - Defaecation disorder [Not Recovered/Not Resolved]
  - Hypertonia [Unknown]
  - Adjustment disorder [Unknown]
  - Sleep disorder [Unknown]
  - Depression [Unknown]
  - Headache [Unknown]
  - Somnolence [Unknown]
  - Pain in extremity [Unknown]
  - Weight increased [Unknown]
  - Sciatica [Unknown]
  - Myalgia [Unknown]
  - Testicular disorder [Recovering/Resolving]
  - Abdominal pain lower [Unknown]
  - Fibrin D dimer increased [Unknown]
  - Depressed mood [Unknown]
  - Fatigue [Unknown]
  - Vertebral lesion [Unknown]
  - Intervertebral disc annular tear [Unknown]
  - Scoliosis [Unknown]
  - Back disorder [Unknown]
  - Initial insomnia [Unknown]
  - Gamma-glutamyltransferase increased [Recovered/Resolved with Sequelae]

NARRATIVE: CASE EVENT DATE: 20220101
